FAERS Safety Report 5724456-7 (Version None)
Quarter: 2008Q2

REPORT INFORMATION
  Report Type: 
  Country: None (occurrence: None)
  Receive Date: 20080429
  Receipt Date: 20080425
  Transmission Date: 20081010
  Serious: Yes (Hospitalization)
  Sender: FDA-Public Use
  Company Number: 2008SP004173

PATIENT
  Age: 79 Year
  Sex: Male
  Weight: 58 kg

DRUGS (8)
  1. PEG-INTRON [Suspect]
     Indication: HEPATITIS C
     Dosage: 50 MCG;QW;SC
     Route: 058
     Dates: start: 20071012, end: 20080201
  2. REBETOL [Suspect]
     Indication: HEPATITIS C
     Dosage: 200 MG;QD;PO
     Route: 048
     Dates: start: 20071012, end: 20080207
  3. URSO 250 [Concomitant]
  4. STREPTOMYCIN SULFATE [Concomitant]
  5. CYANOCOBALAMIN [Concomitant]
  6. HARNAL [Concomitant]
  7. XALATAN [Concomitant]
  8. KARY UNI [Concomitant]

REACTIONS (2)
  - INJECTION SITE CELLULITIS [None]
  - NECROTISING FASCIITIS [None]
